FAERS Safety Report 8109500-4 (Version None)
Quarter: 2012Q1

REPORT INFORMATION
  Report Type: 
  Country: None (occurrence: None)
  Receive Date: 20120202
  Receipt Date: 20120120
  Transmission Date: 20120608
  Serious: Yes (Other)
  Sender: FDA-Public Use
  Company Number: IN-MYLANLABS-2012S1001681

PATIENT
  Age: 45 Year
  Sex: Male

DRUGS (13)
  1. ZOLPIDEM [Suspect]
     Dosage: 20MG (FROM DAY 18)
     Route: 065
  2. PROPRANOLOL [Concomitant]
     Indication: TREMOR
     Dosage: LONG-ACTING; 40 MG/DAY
     Route: 065
  3. ZOLPIDEM [Suspect]
     Dosage: 15MG (DAYS 24-27)
     Route: 065
  4. PROPRANOLOL [Concomitant]
     Dosage: LONG-ACTING; 80MG
     Route: 065
  5. ZOLPIDEM [Suspect]
     Dosage: 15MG (FROM DAY 17)
     Route: 065
  6. PROPRANOLOL [Concomitant]
     Dosage: LONG-ACTING; 120MG
     Route: 065
  7. ZOLPIDEM [Suspect]
     Indication: SLEEP DISORDER
     Dosage: 10MG STARTED ON ADMISSION DAY 13
     Route: 065
  8. ESCITALOPRAM [Concomitant]
     Dosage: 20 MG/DAY
     Route: 065
  9. ZOLPIDEM [Suspect]
     Dosage: 7.5MG (DAY 35)
     Route: 065
  10. MIRTAZAPINE [Concomitant]
     Indication: SLEEP DISORDER
     Dosage: 7.5MG AT BEDTIME FROM DAY 21
     Route: 065
  11. ZOLPIDEM [Suspect]
     Dosage: ACTUAL DOSE 25MG (DAYS 28-31); PRESCRIBED DOSE 10MG
     Route: 065
  12. LORAZEPAM [Concomitant]
     Indication: ALCOHOL DETOXIFICATION
     Dosage: 8 MG/DAY
     Route: 065
  13. ZOLPIDEM [Suspect]
     Dosage: ACTUAL DOSE 20MG (DAYS 32-34); PRESCRIBED DOSE 5MG
     Route: 065

REACTIONS (2)
  - MEDICATION ERROR [None]
  - DELIRIUM [None]
